FAERS Safety Report 6128145-9 (Version None)
Quarter: 2009Q1

REPORT INFORMATION
  Report Type: 
  Country: None (occurrence: None)
  Receive Date: 20090323
  Receipt Date: 20090310
  Transmission Date: 20090719
  Serious: Yes (Hospitalization)
  Sender: FDA-Public Use
  Company Number: US-ROCHE-621547

PATIENT
  Sex: Male

DRUGS (13)
  1. PEG-INTERFERON ALFA 2A (RO 25-8310) [Suspect]
     Indication: HEPATITIS C
     Route: 058
     Dates: start: 20081119
  2. RIBAVIRIN [Suspect]
     Indication: HEPATITIS C
     Route: 048
     Dates: start: 20081119
  3. VX-950 [Suspect]
     Indication: HEPATITIS C
     Route: 048
     Dates: start: 20081119, end: 20090210
  4. PROMETHAZINE [Concomitant]
     Indication: NAUSEA
     Dates: start: 20070101
  5. PROTONIX [Concomitant]
     Dates: start: 20070101
  6. HYDROCODONE [Concomitant]
     Indication: BACK PAIN
     Dates: start: 20040101
  7. METOPROLOL TARTRATE [Concomitant]
     Indication: HYPERTENSION
     Dates: start: 20060101
  8. TYLENOL [Concomitant]
     Dates: start: 20081119
  9. ADVIL [Concomitant]
     Dates: start: 20081119
  10. CLARITIN [Concomitant]
     Indication: HEADACHE
     Dates: start: 20081207
  11. ZYRTEC [Concomitant]
     Indication: HEADACHE
     Dates: start: 20081219
  12. HYDROCORTISONE CREAM [Concomitant]
     Indication: RASH
     Dosage: DRUG NAME: HYDROCORTISONE CREAM 1%
     Dates: start: 20081219
  13. TRIAMCINOLONE [Concomitant]
     Indication: RASH
     Dosage: DRG NAME: TRIAMCINOLONE 0.5%
     Dates: start: 20090220

REACTIONS (1)
  - DEEP VEIN THROMBOSIS [None]
